FAERS Safety Report 6782255-1 (Version None)
Quarter: 2010Q2

REPORT INFORMATION
  Report Type: 
  Country: None (occurrence: None)
  Receive Date: 20100615
  Receipt Date: 20100531
  Transmission Date: 20101027
  Serious: Yes (Life-Threatening)
  Sender: FDA-Public Use
  Company Number: LEO-2010-00448

PATIENT
  Age: 32 Year
  Sex: Female

DRUGS (1)
  1. INNOHEP [Suspect]
     Indication: PORTAL SHUNT

REACTIONS (1)
  - NO ADVERSE EVENT [None]
